FAERS Safety Report 9629851 (Version 2)
Quarter: 2013Q4

REPORT INFORMATION
  Report Type: Spontaneous
  Country: IE (occurrence: IE)
  Receive Date: 20131017
  Receipt Date: 20131220
  Transmission Date: 20140711
  Serious: Yes (Hospitalization, Other)
  Sender: FDA-Public Use
  Company Number: IE-ASTRAZENECA-2013SE75512

PATIENT
  Age: 72 Year
  Sex: Male

DRUGS (11)
  1. SEROQUEL XR [Suspect]
     Route: 048
  2. SEROQUEL XR [Suspect]
     Route: 048
  3. OMEPRAZOLE [Concomitant]
  4. VITAMIN B1 [Concomitant]
  5. IRON SUPPLIMENT [Concomitant]
  6. PARACETAMOL [Concomitant]
     Indication: PAIN
  7. ALENDRONATE AND CALCIUM VITAMIN D [Concomitant]
  8. DALMANE [Concomitant]
  9. SINEMET PLUS [Concomitant]
  10. DIAMICRON MR [Concomitant]
  11. DONEPEZIL [Concomitant]

REACTIONS (3)
  - Ischaemic stroke [Unknown]
  - Agitation [Unknown]
  - Off label use [Unknown]
